FAERS Safety Report 18588014 (Version 2)
Quarter: 2020Q4

REPORT INFORMATION
  Report Type: Report from Study
  Country: GB (occurrence: GB)
  Receive Date: 20201207
  Receipt Date: 20201207
  Transmission Date: 20210114
  Serious: Yes (Other)
  Sender: FDA-Public Use
  Company Number: GB-JNJFOC-20200836021

PATIENT
  Age: 44 Year
  Sex: Male

DRUGS (1)
  1. DURASEAL [Suspect]
     Active Substance: BOVINE TYPE I COLLAGEN
     Indication: TISSUE SEALING
     Route: 065
     Dates: start: 20150928, end: 20150928

REACTIONS (1)
  - Pseudomeningocele [Recovered/Resolved]

NARRATIVE: CASE EVENT DATE: 20151023
